FAERS Safety Report 24144354 (Version 1)
Quarter: 2024Q3

REPORT INFORMATION
  Report Type: Report from Study
  Country: CA (occurrence: CA)
  Receive Date: 20240728
  Receipt Date: 20240728
  Transmission Date: 20241017
  Serious: Yes (Hospitalization, Other)
  Sender: SAMSUNG BIOEPIS
  Company Number: CA-SAMSUNG BIOEPIS-SB-2024-22332

PATIENT
  Age: 55 Year
  Sex: Female

DRUGS (2)
  1. HADLIMA [Suspect]
     Active Substance: ADALIMUMAB-BWWD
     Indication: Psoriatic arthropathy
     Dosage: 40MG/0.8ML
     Route: 065
     Dates: start: 20230711
  2. DULOXETINE [Concomitant]
     Active Substance: DULOXETINE
     Indication: Product used for unknown indication
     Route: 065

REACTIONS (7)
  - Angina pectoris [Unknown]
  - Rheumatoid arthritis [Unknown]
  - Pain [Unknown]
  - Discomfort [Unknown]
  - Illness [Unknown]
  - Injection site pain [Unknown]
  - Drug ineffective [Unknown]
